FAERS Safety Report 18174331 (Version 1)
Quarter: 2020Q3

REPORT INFORMATION
  Report Type: Spontaneous
  Country: US (occurrence: US)
  Receive Date: 20200820
  Receipt Date: 20200820
  Transmission Date: 20201103
  Serious: Yes (Other)
  Sender: FDA-Public Use
  Company Number: US-SUN PHARMACEUTICAL INDUSTRIES LTD-2020R1-257951

PATIENT
  Age: 35 Year
  Sex: Male

DRUGS (1)
  1. ISOTRETINOIN. [Suspect]
     Active Substance: ISOTRETINOIN
     Indication: ACNE
     Dosage: UNK UNK, DAILY
     Route: 048

REACTIONS (5)
  - Photophobia [Not Recovered/Not Resolved]
  - Vitreous floaters [Unknown]
  - Visual impairment [Unknown]
  - Choroid melanoma [Recovering/Resolving]
  - Headache [Unknown]
